FAERS Safety Report 12141056 (Version 1)
Quarter: 2016Q1

REPORT INFORMATION
  Report Type: Spontaneous
  Country: US (occurrence: None)
  Receive Date: 20160302
  Receipt Date: 20160302
  Transmission Date: 20160526
  Serious: Yes (Disabling, Other)
  Sender: FDA-Public Use
  Company Number: None

PATIENT
  Age: 57 Year
  Sex: Male
  Weight: 113.4 kg

DRUGS (4)
  1. AMLODIPIEN BESYLATE [Concomitant]
  2. DULOXETINE HCL [Suspect]
     Active Substance: DULOXETINE HYDROCHLORIDE
     Indication: DEPRESSION
     Dosage: 3 PILLS   2AM  1PM
     Route: 048
     Dates: start: 20160112, end: 20160125
  3. BUPROPION. [Concomitant]
     Active Substance: BUPROPION
  4. AMLODIPINE ATORVAST [Concomitant]

REACTIONS (8)
  - Constipation [None]
  - Anxiety [None]
  - Product substitution issue [None]
  - Nightmare [None]
  - Tinnitus [None]
  - Insomnia [None]
  - Dry mouth [None]
  - Dyspepsia [None]

NARRATIVE: CASE EVENT DATE: 20160120
